FAERS Safety Report 19808015 (Version 1)
Quarter: 2021Q3

REPORT INFORMATION
  Report Type: Spontaneous
  Country: US (occurrence: US)
  Receive Date: 20210907
  Receipt Date: 20210907
  Transmission Date: 20211014
  Serious: No
  Sender: FDA-Public Use
  Company Number: None

PATIENT
  Age: 58 Year
  Sex: Male

DRUGS (1)
  1. GALCANEZUMAB?GNLM (GALCANEZUMAB?GNLM 120MG/ML INJ, PEN 1ML) [Suspect]
     Active Substance: GALCANEZUMAB-GNLM
     Indication: PAIN
     Route: 058
     Dates: start: 20210123, end: 20210622

REACTIONS (3)
  - Injection site reaction [None]
  - Rash [None]
  - Constipation [None]

NARRATIVE: CASE EVENT DATE: 20210622
